FAERS Safety Report 16172643 (Version 2)
Quarter: 2019Q2

REPORT INFORMATION
  Report Type: Spontaneous
  Country: DE (occurrence: DE)
  Receive Date: 20190409
  Receipt Date: 20190514
  Transmission Date: 20190711
  Serious: Yes (Hospitalization)
  Sender: FDA-Public Use
  Company Number: DE-ROCHE-2296066

PATIENT
  Age: 31 Year
  Sex: Male

DRUGS (6)
  1. OCREVUS [Suspect]
     Active Substance: OCRELIZUMAB
     Indication: RELAPSING-REMITTING MULTIPLE SCLEROSIS
     Route: 042
     Dates: start: 201809
  2. GABAPENTIN. [Concomitant]
     Active Substance: GABAPENTIN
     Route: 065
  3. OCREVUS [Suspect]
     Active Substance: OCRELIZUMAB
     Route: 042
     Dates: start: 201810
  4. OCREVUS [Suspect]
     Active Substance: OCRELIZUMAB
     Route: 042
  5. BACLOFEN. [Concomitant]
     Active Substance: BACLOFEN
     Route: 065
  6. POLAMIDON [Concomitant]
     Active Substance: LEVOMETHADONE
     Route: 065

REACTIONS (7)
  - Multiple sclerosis [Unknown]
  - Neutropenia [Recovered/Resolved]
  - C-reactive protein increased [Recovering/Resolving]
  - Urinary incontinence [Recovered/Resolved]
  - Lymphopenia [Recovered/Resolved]
  - Nasopharyngitis [Unknown]
  - Procalcitonin increased [Unknown]

NARRATIVE: CASE EVENT DATE: 201903
